FAERS Safety Report 5447879-2 (Version None)
Quarter: 2007Q3

REPORT INFORMATION
  Report Type: 
  Country: None (occurrence: None)
  Receive Date: 20070910
  Receipt Date: 20070903
  Transmission Date: 20080115
  Serious: Yes (Hospitalization, Other)
  Sender: FDA-Public Use
  Company Number: GB-PFIZER INC-2007024243

PATIENT
  Sex: Male
  Weight: 88 kg

DRUGS (6)
  1. HYDROCORTISONE ACETATE [Suspect]
     Route: 048
  2. ASPIRIN [Concomitant]
  3. CLOPIDOGREL [Concomitant]
  4. FLUDROCORTISONE ACETATE [Concomitant]
  5. LIPITOR [Concomitant]
  6. RAMIPRIL [Concomitant]

REACTIONS (5)
  - BLOOD GLUCOSE INCREASED [None]
  - FOOD POISONING [None]
  - HYPERGLYCAEMIA [None]
  - MALAISE [None]
  - PYREXIA [None]
